FAERS Safety Report 17948274 (Version 1)
Quarter: 2020Q2

REPORT INFORMATION
  Report Type: Spontaneous
  Country: US (occurrence: US)
  Receive Date: 20200625
  Receipt Date: 20200625
  Transmission Date: 20200714
  Serious: No
  Sender: FDA-Public Use
  Company Number: US-NOVOPROD-716460

PATIENT
  Age: 70 Year
  Sex: Male
  Weight: 103.4 kg

DRUGS (1)
  1. OZEMPIC [Suspect]
     Active Substance: SEMAGLUTIDE
     Indication: TYPE 2 DIABETES MELLITUS
     Dosage: 1 MG, QW
     Route: 058
     Dates: start: 202002

REACTIONS (5)
  - Feeling abnormal [Unknown]
  - Tenderness [Unknown]
  - Inflammation [Unknown]
  - Hyperventilation [Unknown]
  - Panic reaction [Unknown]

NARRATIVE: CASE EVENT DATE: 202002
